FAERS Safety Report 12403424 (Version 1)
Quarter: 2016Q2

REPORT INFORMATION
  Report Type: Spontaneous
  Country: US (occurrence: US)
  Receive Date: 20160525
  Receipt Date: 20160525
  Transmission Date: 20160815
  Serious: Yes (Other)
  Sender: FDA-Public Use
  Company Number: US-BAXTER-2016BAX026069

PATIENT
  Sex: Female

DRUGS (1)
  1. TISSEEL [Suspect]
     Active Substance: FIBRINOGEN HUMAN\THROMBIN HUMAN
     Indication: PRODUCT USED FOR UNKNOWN INDICATION
     Route: 065
     Dates: start: 20160406

REACTIONS (5)
  - Spinal pain [Unknown]
  - Spinal cord compression [Recovered/Resolved]
  - Procedural complication [Recovered/Resolved]
  - Incision site oedema [Unknown]
  - Pain [Unknown]

NARRATIVE: CASE EVENT DATE: 201604
